FAERS Safety Report 10104299 (Version 2)
Quarter: 2014Q3

REPORT INFORMATION
  Report Type: Other
  Country: US (occurrence: US)
  Receive Date: 20140424
  Receipt Date: 20140819
  Transmission Date: 20150326
  Serious: Yes (Hospitalization, Other)
  Sender: FDA-Public Use
  Company Number: US-GSKPPD-2014GSK003083

PATIENT
  Age: 84 Year
  Sex: Female

DRUGS (6)
  1. PROCARDIA XL [Concomitant]
     Active Substance: NIFEDIPINE
  2. IMDUR [Concomitant]
     Active Substance: ISOSORBIDE MONONITRATE
  3. AVANDIA [Suspect]
     Active Substance: ROSIGLITAZONE MALEATE
     Indication: DIABETES MELLITUS
     Dosage: DATES OF AVANDIA USE COULD NOT BE CONFIRMED IN RECORDS REVIEWED
     Route: 048
  4. DEMADEX [Concomitant]
     Active Substance: TORSEMIDE
  5. COZAAR [Concomitant]
     Active Substance: LOSARTAN POTASSIUM
  6. ASPIRIN. [Concomitant]
     Active Substance: ASPIRIN

REACTIONS (2)
  - Pericardial effusion [Recovered/Resolved]
  - Myocardial infarction [None]

NARRATIVE: CASE EVENT DATE: 20050317
